FAERS Safety Report 18889830 (Version 4)
Quarter: 2021Q2

REPORT INFORMATION
  Report Type: Spontaneous
  Country: US (occurrence: US)
  Receive Date: 20210213
  Receipt Date: 20210512
  Transmission Date: 20210717
  Serious: Yes (Congenital Anomaly, Other)
  Sender: FDA-Public Use
  Company Number: NVSC2021US033133

PATIENT
  Sex: Male

DRUGS (1)
  1. ZOFRAN [Suspect]
     Active Substance: ONDANSETRON HYDROCHLORIDE
     Indication: FOETAL EXPOSURE DURING PREGNANCY
     Dosage: MOTHER DOSE: 04 DF, QD
     Route: 064

REACTIONS (15)
  - Otitis media [Unknown]
  - Ear infection [Unknown]
  - Wheezing [Unknown]
  - Nasal congestion [Unknown]
  - Upper respiratory tract infection [Unknown]
  - Autism spectrum disorder [Unknown]
  - Inguinal hernia [Unknown]
  - Atrial septal defect [Unknown]
  - Kidney enlargement [Unknown]
  - Nasopharyngitis [Unknown]
  - Bronchiolitis [Unknown]
  - Injury [Unknown]
  - Patent ductus arteriosus [Unknown]
  - Foetal exposure during pregnancy [Unknown]
  - Asthma [Unknown]
